FAERS Safety Report 25303407 (Version 1)
Quarter: 2025Q2

REPORT INFORMATION
  Report Type: Spontaneous
  Country: IT (occurrence: IT)
  Receive Date: 20250512
  Receipt Date: 20250512
  Transmission Date: 20250716
  Serious: Yes (Hospitalization, Other)
  Sender: BRISTOL-MYERS SQUIBB COMPANY
  Company Number: IT-ALFASIGMA-2025-AER-02789

PATIENT
  Sex: Female

DRUGS (2)
  1. ELIQUIS [Interacting]
     Active Substance: APIXABAN
     Indication: Product used for unknown indication
  2. DICLOFENAC SODIUM [Interacting]
     Active Substance: DICLOFENAC SODIUM
     Indication: Pain
     Dosage: 1 TABLET EVERY 3 DAYS?150 CAPS

REACTIONS (3)
  - Cerebral haemorrhage [Unknown]
  - Hemiparesis [Unknown]
  - Labelled drug-drug interaction medication error [Unknown]
